FAERS Safety Report 9445490 (Version 1)
Quarter: 2013Q3

REPORT INFORMATION
  Report Type: Spontaneous
  Country: IT (occurrence: None)
  Receive Date: 20130802
  Receipt Date: 20130802
  Transmission Date: 20140515
  Serious: Yes (Other)
  Sender: FDA-Public Use
  Company Number: AUR-APL-2013-05154

PATIENT
  Age: 75 Year
  Sex: Male

DRUGS (2)
  1. METFORMIN (METFORMIN) [Suspect]
     Indication: PRODUCT USED FOR UNKNOWN INDICATION
     Dosage: 1 D
     Route: 048
     Dates: start: 20111227, end: 20121005
  2. TICLOPIDINE [Suspect]
     Indication: PRODUCT USED FOR UNKNOWN INDICATION
     Dosage: 1 D
     Route: 048
     Dates: start: 20111222, end: 20121005

REACTIONS (3)
  - Dermatitis acneiform [None]
  - Sensation of heaviness [None]
  - Pharyngeal disorder [None]
